FAERS Safety Report 17883353 (Version 2)
Quarter: 2020Q3

REPORT INFORMATION
  Report Type: Spontaneous
  Country: US (occurrence: US)
  Receive Date: 20200611
  Receipt Date: 20200710
  Transmission Date: 20201103
  Serious: No
  Sender: FDA-Public Use
  Company Number: US-GLAXOSMITHKLINE-US2020AMR098220

PATIENT
  Age: 82 Year
  Sex: Male

DRUGS (1)
  1. FLOVENT DISKUS [Suspect]
     Active Substance: FLUTICASONE PROPIONATE
     Indication: PRODUCT USED FOR UNKNOWN INDICATION
     Dosage: 1 PUFF(S) (AS NEEDED OR ONCE DAILY)
     Route: 065

REACTIONS (3)
  - Off label use [Unknown]
  - Dizziness [Unknown]
  - Inappropriate schedule of product administration [Unknown]
